FAERS Safety Report 9831924 (Version 1)
Quarter: 2014Q1

REPORT INFORMATION
  Report Type: Spontaneous
  Country: US (occurrence: US)
  Receive Date: 20140121
  Receipt Date: 20140121
  Transmission Date: 20141002
  Serious: No
  Sender: FDA-Public Use
  Company Number: US-PFIZER INC-2014014379

PATIENT
  Age: 58 Year
  Sex: Female

DRUGS (1)
  1. ESTRING [Suspect]
     Indication: ATROPHIC VULVOVAGINITIS
     Dosage: UNK

REACTIONS (1)
  - Discomfort [Unknown]
